FAERS Safety Report 7105408-1 (Version None)
Quarter: 2010Q4

REPORT INFORMATION
  Report Type: 
  Country: None (occurrence: None)
  Receive Date: 20101116
  Receipt Date: 20101108
  Transmission Date: 20110411
  Serious: Yes (Hospitalization)
  Sender: FDA-Public Use
  Company Number: US-SANOFI-AVENTIS-2010SA068760

PATIENT
  Age: 73 Year
  Sex: Male

DRUGS (6)
  1. MULTAQ [Suspect]
     Route: 065
     Dates: start: 20100830, end: 20101030
  2. LABETALOL HCL [Concomitant]
     Dates: end: 20100922
  3. LISINOPRIL [Concomitant]
  4. NORVASC [Concomitant]
  5. SIMVASTATIN [Concomitant]
  6. COUMADIN [Concomitant]

REACTIONS (3)
  - CARDIAC ARREST [None]
  - HYPOXIC-ISCHAEMIC ENCEPHALOPATHY [None]
  - VENTRICULAR TACHYCARDIA [None]
